FAERS Safety Report 14908629 (Version 1)
Quarter: 2018Q2

REPORT INFORMATION
  Report Type: Spontaneous
  Country: DE (occurrence: DE)
  Receive Date: 20180517
  Receipt Date: 20180517
  Transmission Date: 20180711
  Serious: Yes (Death)
  Sender: FDA-Public Use
  Company Number: DE-AUROBINDO-AUR-APL-2018-026698

PATIENT
  Age: 70 Year
  Sex: Male
  Weight: 92 kg

DRUGS (5)
  1. FASTURTEC [Concomitant]
     Active Substance: RASBURICASE
     Indication: TUMOUR LYSIS SYNDROME
     Dosage: ()
     Route: 042
     Dates: start: 20180403, end: 20180413
  2. VENETOCLAX. [Suspect]
     Active Substance: VENETOCLAX
     Indication: CHRONIC LYMPHOCYTIC LEUKAEMIA
     Dosage: ()
     Route: 048
     Dates: start: 20180331, end: 20180417
  3. FUROSEMID                          /00032601/ [Concomitant]
     Active Substance: FUROSEMIDE
     Indication: RENAL FAILURE
     Route: 065
  4. LINEZOLID. [Suspect]
     Active Substance: LINEZOLID
     Indication: PNEUMONIA
     Dosage: DAILY DOSE: 1200 MG MILLGRAM(S) EVERY DAYS
     Route: 042
     Dates: start: 20180406, end: 20180413
  5. MERONEM [Concomitant]
     Active Substance: MEROPENEM
     Indication: PNEUMONIA
     Dosage: DAILY DOSE: 2 G GRAM(S) EVERY DAYS
     Route: 042
     Dates: start: 20180227, end: 20180413

REACTIONS (2)
  - Metabolic acidosis [Fatal]
  - Mitochondrial toxicity [Fatal]

NARRATIVE: CASE EVENT DATE: 20180413
